FAERS Safety Report 5202618-5 (Version None)
Quarter: 2007Q1

REPORT INFORMATION
  Report Type: 
  Country: None (occurrence: None)
  Receive Date: 20070109
  Receipt Date: 20061219
  Transmission Date: 20070707
  Serious: Yes (Death, Other)
  Sender: FDA-Public Use
  Company Number: JP-PFIZER INC-2006152839

PATIENT

DRUGS (1)
  1. SULPERAZON [Suspect]
     Indication: CHOLECYSTITIS ACUTE
     Route: 042

REACTIONS (2)
  - COMA [None]
  - ENCEPHALITIS [None]
